FAERS Safety Report 16323962 (Version 2)
Quarter: 2019Q2

REPORT INFORMATION
  Report Type: Report from Study
  Country: DE (occurrence: DE)
  Receive Date: 20190517
  Receipt Date: 20190618
  Transmission Date: 20190711
  Serious: Yes (Hospitalization, Other)
  Sender: FDA-Public Use
  Company Number: DE-ROCHE-2018851

PATIENT
  Age: 70 Year
  Sex: Female
  Weight: 89 kg

DRUGS (6)
  1. PACLITAXEL. [Suspect]
     Active Substance: PACLITAXEL
     Indication: HER-2 POSITIVE BREAST CANCER
     Dosage: DAY 1, 8 AND 15?ON 08/DEC/2018, MOST RECENT DOSE OF PACLITAXEL WAS RECEIVED.
     Route: 065
     Dates: start: 20171006
  2. METOPROLOL. [Concomitant]
     Active Substance: METOPROLOL
     Indication: HYPERTENSION
     Route: 065
  3. ZOLEDRONIC ACID [Suspect]
     Active Substance: ZOLEDRONIC ACID
     Indication: HER-2 POSITIVE BREAST CANCER
     Dosage: ON 01/DEC/2017, RECEIVED MOST RECENT DOSE OF ZOLEDRONIC ACID.
     Route: 065
     Dates: start: 20171103
  4. TRASTUZUMAB. [Suspect]
     Active Substance: TRASTUZUMAB
     Indication: HER-2 POSITIVE BREAST CANCER
     Dosage: DAY 1?ON 08/DEC/2018, MOST RECENT DOSE OF TRASTUZUMAB WAS RECEIVED.
     Route: 042
     Dates: start: 20171006
  5. PERTUZUMAB. [Suspect]
     Active Substance: PERTUZUMAB
     Indication: HER-2 POSITIVE BREAST CANCER
     Dosage: DAY 1?ON 08/DEC/2018, MOST RECENT DOSE OF PERTUZUMAB WAS RECEIVED.
     Route: 065
     Dates: start: 20171006
  6. LOSARTAN. [Concomitant]
     Active Substance: LOSARTAN
     Indication: HYPERTENSION
     Route: 065

REACTIONS (9)
  - Diarrhoea [Recovered/Resolved]
  - Nasopharyngitis [Recovered/Resolved]
  - Nail discolouration [Recovered/Resolved]
  - Decreased appetite [Recovered/Resolved]
  - Skin toxicity [Recovered/Resolved]
  - Toxic epidermal necrolysis [Recovered/Resolved]
  - Dyspnoea [Recovered/Resolved]
  - General physical health deterioration [Unknown]
  - Malaise [Recovered/Resolved]

NARRATIVE: CASE EVENT DATE: 20171016
